FAERS Safety Report 8043178-3 (Version None)
Quarter: 2012Q1

REPORT INFORMATION
  Report Type: 
  Country: None (occurrence: None)
  Receive Date: 20120112
  Receipt Date: 20120104
  Transmission Date: 20120608
  Serious: Yes (Other)
  Sender: FDA-Public Use
  Company Number: US-TEVA-2011005616

PATIENT
  Sex: Female
  Weight: 81.266 kg

DRUGS (3)
  1. NUVIGIL [Suspect]
     Dosage: 150 MILLIGRAM;
     Route: 048
  2. SUBOXONE [Concomitant]
     Dosage: 8MG/2MG
  3. ATENOLOL [Concomitant]
     Dosage: 50 MILLIGRAM;
     Route: 048

REACTIONS (1)
  - RASH GENERALISED [None]
